FAERS Safety Report 8431904-0 (Version None)
Quarter: 2012Q2

REPORT INFORMATION
  Report Type: 
  Country: None (occurrence: None)
  Receive Date: 20120607
  Receipt Date: 20120522
  Transmission Date: 20120825
  Serious: Yes (Hospitalization)
  Sender: FDA-Public Use
  Company Number: JPI-P-021510

PATIENT
  Age: 56 Year
  Sex: Female

DRUGS (2)
  1. XYREM [Suspect]
     Indication: SOMNOLENCE
     Dosage: ORAL
     Route: 048
  2. AMPHETAMINE DEXTROAMPHETAMINE MIXED SALTS [Concomitant]

REACTIONS (4)
  - CONDITION AGGRAVATED [None]
  - BIPOLAR DISORDER [None]
  - DECREASED APPETITE [None]
  - OBSESSIVE-COMPULSIVE DISORDER [None]
